FAERS Safety Report 7342820-X (Version None)
Quarter: 2011Q1

REPORT INFORMATION
  Report Type: 
  Country: None (occurrence: None)
  Receive Date: 20110302
  Receipt Date: 20110214
  Transmission Date: 20110831
  Serious: Yes (Other)
  Sender: FDA-Public Use
  Company Number: IMP_05351_2011

PATIENT
  Sex: Female

DRUGS (1)
  1. BUPROPION HCL [Suspect]
     Indication: PRODUCT USED FOR UNKNOWN INDICATION
     Dosage: DF

REACTIONS (13)
  - HEADACHE [None]
  - VOMITING [None]
  - ECONOMIC PROBLEM [None]
  - VISUAL IMPAIRMENT [None]
  - ERUCTATION [None]
  - VERTIGO [None]
  - BALANCE DISORDER [None]
  - TOXICITY TO VARIOUS AGENTS [None]
  - MALAISE [None]
  - LOSS OF EMPLOYMENT [None]
  - PRODUCT QUALITY ISSUE [None]
  - NAUSEA [None]
  - PRODUCT ODOUR ABNORMAL [None]
